FAERS Safety Report 6906357-1 (Version None)
Quarter: 2010Q3

REPORT INFORMATION
  Report Type: 
  Country: None (occurrence: None)
  Receive Date: 20100804
  Receipt Date: 20100726
  Transmission Date: 20110219
  Serious: Yes (Hospitalization)
  Sender: FDA-Public Use
  Company Number: A0862572B

PATIENT
  Age: 62 Year
  Sex: Female
  Weight: 50 kg

DRUGS (6)
  1. MELPHALAN [Suspect]
     Indication: AMYLOIDOSIS
     Dosage: 70MGM2 PER DAY
     Route: 042
     Dates: start: 20100406, end: 20100407
  2. ASPIRIN [Concomitant]
  3. MULTI-VITAMIN [Concomitant]
  4. PREVACID [Concomitant]
  5. CITRACAL + D [Concomitant]
  6. ADVAIR DISKUS 100/50 [Concomitant]

REACTIONS (5)
  - BODY TEMPERATURE INCREASED [None]
  - CHILLS [None]
  - ERYTHEMA [None]
  - GRAFT VERSUS HOST DISEASE [None]
  - INFECTION [None]
